FAERS Safety Report 4678541-1 (Version None)
Quarter: 2005Q2

REPORT INFORMATION
  Report Type: 
  Country: None (occurrence: None)
  Receive Date: 20050601
  Receipt Date: 20050519
  Transmission Date: 20051028
  Serious: Yes (Hospitalization)
  Sender: FDA-Public Use
  Company Number: FR-JNJFOC-20050505294

PATIENT
  Age: 75 Year
  Sex: Male

DRUGS (3)
  1. RISPERDAL [Suspect]
     Route: 049
     Dates: start: 20021101, end: 20050401
  2. RISPERDAL [Suspect]
     Route: 049
     Dates: start: 20021101, end: 20050401
  3. RISPERDAL [Suspect]
     Indication: DRUG USE FOR UNKNOWN INDICATION
     Route: 049
     Dates: start: 20021101, end: 20050401

REACTIONS (2)
  - EXTRAPYRAMIDAL DISORDER [None]
  - VASCULAR DEMENTIA [None]
